FAERS Safety Report 9689779 (Version 1)
Quarter: 2013Q4

REPORT INFORMATION
  Report Type: Spontaneous
  Country: US (occurrence: US)
  Receive Date: 20131115
  Receipt Date: 20131115
  Transmission Date: 20140711
  Serious: Yes (Hospitalization)
  Sender: FDA-Public Use
  Company Number: US-AMGEN-USASP2013080120

PATIENT
  Sex: 0

DRUGS (1)
  1. ENBREL [Suspect]
     Indication: PRODUCT USED FOR UNKNOWN INDICATION
     Dosage: UNK
     Route: 065

REACTIONS (7)
  - Dyspnoea [Unknown]
  - Streptococcal infection [Unknown]
  - Chest pain [Unknown]
  - Drug hypersensitivity [Unknown]
  - Immune system disorder [Unknown]
  - Fatigue [Unknown]
  - Fluid overload [Unknown]
